FAERS Safety Report 13920397 (Version 1)
Quarter: 2017Q3

REPORT INFORMATION
  Report Type: Spontaneous
  Country: US (occurrence: US)
  Receive Date: 20170829
  Receipt Date: 20170829
  Transmission Date: 20171127
  Serious: Yes (Other)
  Sender: FDA-Public Use
  Company Number: None

PATIENT
  Age: 63 Year
  Sex: Female
  Weight: 54.9 kg

DRUGS (3)
  1. ZONALON [Suspect]
     Active Substance: DOXEPIN HYDROCHLORIDE
     Indication: PRURITUS
     Dosage: ?          QUANTITY:1 1;?
     Route: 061
     Dates: start: 20170823, end: 20170825
  2. ZONALON [Suspect]
     Active Substance: DOXEPIN HYDROCHLORIDE
     Indication: URTICARIA CHRONIC
     Dosage: ?          QUANTITY:1 1;?
     Route: 061
     Dates: start: 20170823, end: 20170825
  3. ZONALON [Suspect]
     Active Substance: DOXEPIN HYDROCHLORIDE
     Indication: CONDITION AGGRAVATED
     Dosage: ?          QUANTITY:1 1;?
     Route: 061
     Dates: start: 20170823, end: 20170825

REACTIONS (5)
  - Vertigo [None]
  - Dizziness [None]
  - Discomfort [None]
  - Impaired driving ability [None]
  - Sleep disorder [None]

NARRATIVE: CASE EVENT DATE: 20170824
